FAERS Safety Report 10254190 (Version 2)
Quarter: 2014Q2

REPORT INFORMATION
  Report Type: Spontaneous
  Country: GB (occurrence: GB)
  Receive Date: 20140624
  Receipt Date: 20140624
  Transmission Date: 20141212
  Serious: Yes (Other)
  Sender: FDA-Public Use
  Company Number: GB-MERCK-1406GBR004078

PATIENT
  Age: 51 Year
  Sex: Male
  Weight: 97 kg

DRUGS (8)
  1. SITAGLIPTIN PHOSPHATE [Suspect]
     Indication: TYPE 2 DIABETES MELLITUS
     Dosage: 100 MG, QD
     Route: 048
     Dates: end: 20120824
  2. GLICLAZIDE [Suspect]
     Indication: DIABETES MELLITUS
     Dosage: 160 MG, BID
  3. METFORMIN [Concomitant]
     Indication: DIABETES MELLITUS
     Dosage: 1 G, BID
     Dates: start: 200804, end: 201307
  4. PRANDIN (DEFLAZACORT) [Concomitant]
     Dosage: 1 MG, TID
     Dates: start: 200812, end: 201304
  5. AMITRIPTYLINE HYDROCHLORIDE [Concomitant]
     Dosage: 20 MG, QPM
     Dates: start: 200811
  6. AMLODIPINE [Concomitant]
     Dosage: 10 MG, QD
     Dates: start: 201203
  7. ASPIRIN [Concomitant]
     Dosage: 75 MG, QD
     Dates: start: 201203
  8. ATORVASTATIN [Concomitant]
     Dosage: 40 MG, QPM
     Dates: start: 201111

REACTIONS (2)
  - Malaise [Recovering/Resolving]
  - Glomerular filtration rate decreased [Recovering/Resolving]
